FAERS Safety Report 6311189-1 (Version None)
Quarter: 2009Q3

REPORT INFORMATION
  Report Type: 
  Country: None (occurrence: None)
  Receive Date: 20090817
  Receipt Date: 20090804
  Transmission Date: 20100115
  Serious: Yes (Other)
  Sender: FDA-Public Use
  Company Number: US-AMGEN-US359310

PATIENT
  Sex: Male

DRUGS (2)
  1. ENBREL [Suspect]
     Indication: PSORIASIS
     Dates: start: 20040501, end: 20050501
  2. ACCUPRIL [Concomitant]

REACTIONS (26)
  - ABDOMINAL PAIN [None]
  - ACTIVITIES OF DAILY LIVING IMPAIRED [None]
  - ALOPECIA TOTALIS [None]
  - ALOPECIA UNIVERSALIS [None]
  - AORTIC STENOSIS [None]
  - AORTIC VALVE INCOMPETENCE [None]
  - BLOOD PRESSURE DECREASED [None]
  - CLUBBING [None]
  - CONNECTIVE TISSUE DISORDER [None]
  - CONSTIPATION [None]
  - COSTOCHONDRITIS [None]
  - CYANOSIS [None]
  - DEPRESSION [None]
  - DIZZINESS [None]
  - DYSPNOEA [None]
  - DYSURIA [None]
  - MENTAL DISORDER [None]
  - MYALGIA [None]
  - NASOPHARYNGITIS [None]
  - OEDEMA PERIPHERAL [None]
  - ORTHOPNOEA [None]
  - PALPITATIONS [None]
  - POLLAKIURIA [None]
  - RHEUMATOID ARTHRITIS [None]
  - STRESS [None]
  - SYNCOPE [None]
